FAERS Safety Report 8682328 (Version 2)
Quarter: 2013Q1

REPORT INFORMATION
  Report Type: Report from Study
  Country: AT (occurrence: AT)
  Receive Date: 20120725
  Receipt Date: 20130107
  Transmission Date: 20140127
  Serious: Yes (Hospitalization)
  Sender: FDA-Public Use
  Company Number: AT-PFIZER INC-2012176061

PATIENT
  Age: 75 Year
  Sex: Female
  Weight: 65.8 kg

DRUGS (8)
  1. GENOTROPIN [Suspect]
     Dosage: 0.4 MG, 7/WK
     Route: 058
     Dates: start: 19970113, end: 1997
  2. GLUCOPHAGE ^ARON^ [Concomitant]
     Indication: BLOOD DISORDER
     Dosage: UNK
     Dates: start: 19961223
  3. NORVASC [Concomitant]
     Indication: ESSENTIAL HYPERTENSION
     Dosage: UNK
     Dates: start: 19961115
  4. EBRANTIL [Concomitant]
     Indication: ESSENTIAL HYPERTENSION
     Dosage: UNK
     Dates: start: 19960715
  5. KLIOGEST ^NOVO INDUSTRI^ [Concomitant]
     Indication: LUTEINISING HORMONE DEFICIENCY
     Dosage: UNK
     Dates: start: 19960715
  6. KLIOGEST ^NOVO INDUSTRI^ [Concomitant]
     Indication: FOLLICLE-STIMULATING HORMONE DEFICIENCY
  7. KLIOGEST ^NOVO INDUSTRI^ [Concomitant]
     Indication: HYPOGONADISM
  8. THROMBO ASS [Concomitant]
     Indication: ESSENTIAL HYPERTENSION
     Dosage: UNK
     Dates: start: 19940815

REACTIONS (2)
  - Pneumonia [Unknown]
  - Ankle fracture [Unknown]
